FAERS Safety Report 5000652-1 (Version None)
Quarter: 2006Q2

REPORT INFORMATION
  Report Type: 
  Country: None (occurrence: None)
  Receive Date: 20060512
  Receipt Date: 20060504
  Transmission Date: 20061013
  Serious: Yes (Other)
  Sender: FDA-Public Use
  Company Number: US-JNJFOC-20060501249

PATIENT
  Sex: Female

DRUGS (21)
  1. REMICADE [Suspect]
     Indication: RHEUMATOID ARTHRITIS
     Route: 042
  2. ATENOLOL [Concomitant]
  3. CALCIUM GLUCONATE [Concomitant]
  4. LASIX [Concomitant]
  5. MULTI-VITAMIN [Concomitant]
  6. MULTI-VITAMIN [Concomitant]
  7. MULTI-VITAMIN [Concomitant]
  8. MULTI-VITAMIN [Concomitant]
  9. MULTI-VITAMIN [Concomitant]
  10. MULTI-VITAMIN [Concomitant]
  11. MULTI-VITAMIN [Concomitant]
  12. MULTI-VITAMIN [Concomitant]
  13. POTASSIUM [Concomitant]
  14. PREDNISONE TAB [Concomitant]
  15. TYLENOL (CAPLET) [Concomitant]
  16. VALIUM [Concomitant]
  17. HUMIRA [Concomitant]
  18. DIAZEPAM [Concomitant]
  19. MECLIZINE [Concomitant]
  20. DARVOCET-N 100 [Concomitant]
  21. DARVOCET-N 100 [Concomitant]

REACTIONS (1)
  - BASAL CELL CARCINOMA [None]
